FAERS Safety Report 19233132 (Version 1)
Quarter: 2021Q2

REPORT INFORMATION
  Report Type: Report from Study
  Country: IN (occurrence: IN)
  Receive Date: 20210507
  Receipt Date: 20210507
  Transmission Date: 20210717
  Serious: Yes (Death, Hospitalization)
  Sender: FDA-Public Use
  Company Number: NVSC2021IN102130

PATIENT
  Age: 84 Year
  Sex: Male

DRUGS (2)
  1. SIMBRINZA [Suspect]
     Active Substance: BRIMONIDINE TARTRATE\BRINZOLAMIDE
     Indication: GLAUCOMA
     Dosage: 5 ML, BID
     Route: 047
     Dates: start: 20190129
  2. TRAVACOM [Suspect]
     Active Substance: TIMOLOL MALEATE\TRAVOPROST
     Indication: GLAUCOMA
     Dosage: 2.5 ML, QD
     Route: 047
     Dates: start: 20190129

REACTIONS (1)
  - Loss of consciousness [Fatal]

NARRATIVE: CASE EVENT DATE: 20210429
